FAERS Safety Report 15306603 (Version 1)
Quarter: 2018Q3

REPORT INFORMATION
  Report Type: Spontaneous
  Country: US (occurrence: US)
  Receive Date: 20180822
  Receipt Date: 20180822
  Transmission Date: 20181010
  Serious: No
  Sender: FDA-Public Use
  Company Number: US-BIOGEN-2018BI00605724

PATIENT
  Sex: Female

DRUGS (1)
  1. PLEGRIDY [Suspect]
     Active Substance: PEGINTERFERON BETA-1A
     Indication: MULTIPLE SCLEROSIS
     Route: 058
     Dates: start: 20180630

REACTIONS (8)
  - Irritability [Unknown]
  - Peripheral swelling [Unknown]
  - Contusion [Unknown]
  - Somnolence [Unknown]
  - Temperature intolerance [Unknown]
  - Joint swelling [Unknown]
  - Fall [Recovered/Resolved]
  - Bradykinesia [Unknown]

NARRATIVE: CASE EVENT DATE: 2018
